FAERS Safety Report 20307233 (Version 3)
Quarter: 2022Q3

REPORT INFORMATION
  Report Type: Other
  Country: CA (occurrence: CA)
  Receive Date: 20220107
  Receipt Date: 20220720
  Transmission Date: 20221026
  Serious: Yes (Death, Other)
  Sender: FDA-Public Use
  Company Number: CA-CELLTRION INC.-2020CA035182

PATIENT

DRUGS (68)
  1. TRASTUZUMAB [Suspect]
     Active Substance: TRASTUZUMAB
     Indication: Invasive ductal breast carcinoma
     Dosage: UNK
  2. TRASTUZUMAB [Suspect]
     Active Substance: TRASTUZUMAB
     Dosage: UNK, CYCLICAL
     Route: 065
  3. TRASTUZUMAB [Suspect]
     Active Substance: TRASTUZUMAB
     Dosage: UNK
     Route: 065
  4. TRASTUZUMAB [Suspect]
     Active Substance: TRASTUZUMAB
     Dosage: UNK
     Route: 065
  5. ADRIAMYCIN [Suspect]
     Active Substance: DOXORUBICIN HYDROCHLORIDE
     Indication: Invasive ductal breast carcinoma
     Dosage: 35.0 MG/M2, CYCLICAL
     Route: 065
  6. ADRIAMYCIN [Suspect]
     Active Substance: DOXORUBICIN HYDROCHLORIDE
     Indication: Invasive ductal breast carcinoma
     Dosage: UNK
     Route: 065
  7. ADRIAMYCIN [Suspect]
     Active Substance: DOXORUBICIN HYDROCHLORIDE
     Dosage: 35 MG/M2, CYCLICAL
     Route: 051
  8. ADRIAMYCIN [Suspect]
     Active Substance: DOXORUBICIN HYDROCHLORIDE
     Dosage: 35 MG/M2, CYCLICAL
     Route: 065
  9. ADRIAMYCIN [Suspect]
     Active Substance: DOXORUBICIN HYDROCHLORIDE
     Dosage: 35 MG/M2, CYCLICAL
     Route: 042
  10. CISPLATIN [Suspect]
     Active Substance: CISPLATIN
     Indication: Choriocarcinoma
     Dosage: UNK, CYCLICAL
     Route: 065
  11. CISPLATIN [Suspect]
     Active Substance: CISPLATIN
     Dosage: UNK
     Route: 065
  12. CISPLATIN [Suspect]
     Active Substance: CISPLATIN
     Indication: Choriocarcinoma
     Dosage: UNK
     Route: 065
  13. CISPLATIN [Suspect]
     Active Substance: CISPLATIN
     Dosage: UNK, CYCLICAL
     Route: 065
  14. CISPLATIN [Suspect]
     Active Substance: CISPLATIN
     Dosage: UNK, CYCLICAL
     Route: 042
  15. COSMEGEN [Suspect]
     Active Substance: DACTINOMYCIN
     Indication: Choriocarcinoma
     Dosage: UNK
     Route: 065
  16. COSMEGEN [Suspect]
     Active Substance: DACTINOMYCIN
     Indication: Recurrent cancer
     Dosage: UNK, CYCLICAL
     Route: 065
  17. COSMEGEN [Suspect]
     Active Substance: DACTINOMYCIN
     Indication: Metastases to skin
  18. COSMEGEN [Suspect]
     Active Substance: DACTINOMYCIN
     Indication: Metastases to lung
  19. COSMEGEN [Suspect]
     Active Substance: DACTINOMYCIN
     Indication: Metastases to central nervous system
  20. COSMEGEN [Suspect]
     Active Substance: DACTINOMYCIN
     Indication: Choriocarcinoma
     Dosage: UNK UNK, CYCLIC
     Route: 042
  21. COSMEGEN [Suspect]
     Active Substance: DACTINOMYCIN
     Indication: Recurrent cancer
  22. COSMEGEN [Suspect]
     Active Substance: DACTINOMYCIN
     Indication: Metastases to skin
  23. COSMEGEN [Suspect]
     Active Substance: DACTINOMYCIN
     Indication: Metastases to lung
  24. COSMEGEN [Suspect]
     Active Substance: DACTINOMYCIN
     Indication: Metastases to central nervous system
  25. CYCLOPHOSPHAMIDE [Suspect]
     Active Substance: CYCLOPHOSPHAMIDE
     Indication: Choriocarcinoma
     Route: 065
  26. CYCLOPHOSPHAMIDE [Suspect]
     Active Substance: CYCLOPHOSPHAMIDE
     Indication: Metastatic choriocarcinoma
  27. DACTINOMYCIN [Suspect]
     Active Substance: DACTINOMYCIN
     Indication: Choriocarcinoma
     Dosage: UNK, CYCLICAL
     Route: 065
  28. DACTINOMYCIN [Suspect]
     Active Substance: DACTINOMYCIN
     Dosage: UNK
     Route: 065
  29. DACTINOMYCIN [Suspect]
     Active Substance: DACTINOMYCIN
     Dosage: UNK
     Route: 065
  30. DOCETAXEL [Suspect]
     Active Substance: DOCETAXEL
     Indication: Invasive ductal breast carcinoma
     Route: 065
  31. DOXORUBICIN HYDROCHLORIDE [Suspect]
     Active Substance: DOXORUBICIN HYDROCHLORIDE
     Indication: Invasive ductal breast carcinoma
     Route: 065
  32. DOXORUBICIN [Suspect]
     Active Substance: DOXORUBICIN
     Indication: Invasive ductal breast carcinoma
     Route: 065
  33. DOXORUBICIN [Suspect]
     Active Substance: DOXORUBICIN
     Indication: Choriocarcinoma
     Dosage: 35 MG/M2
     Route: 065
  34. DOXORUBICIN [Suspect]
     Active Substance: DOXORUBICIN
     Indication: Invasive ductal breast carcinoma
     Route: 065
  35. DOXORUBICIN [Suspect]
     Active Substance: DOXORUBICIN
     Indication: Choriocarcinoma
  36. DOXORUBICIN HYDROCHLORIDE [Suspect]
     Active Substance: DOXORUBICIN HYDROCHLORIDE
     Indication: Choriocarcinoma
     Dosage: UNK
     Route: 065
  37. DOXORUBICIN HYDROCHLORIDE [Suspect]
     Active Substance: DOXORUBICIN HYDROCHLORIDE
     Indication: Invasive ductal breast carcinoma
     Dosage: UNK
     Route: 065
  38. DOXORUBICIN HYDROCHLORIDE [Suspect]
     Active Substance: DOXORUBICIN HYDROCHLORIDE
     Indication: Recurrent cancer
     Dosage: 35 MG/M2, CYCLICAL
     Route: 065
  39. DOXORUBICIN HYDROCHLORIDE [Suspect]
     Active Substance: DOXORUBICIN HYDROCHLORIDE
     Indication: Metastases to skin
  40. DOXORUBICIN HYDROCHLORIDE [Suspect]
     Active Substance: DOXORUBICIN HYDROCHLORIDE
     Indication: Metastases to central nervous system
  41. ETOPOSIDE [Suspect]
     Active Substance: ETOPOSIDE
     Indication: Metastatic neoplasm
     Dosage: UNK, CYCLICAL
     Route: 065
  42. ETOPOSIDE [Suspect]
     Active Substance: ETOPOSIDE
     Indication: Choriocarcinoma
     Dosage: UNK
     Route: 065
  43. GEMCITABINE HYDROCHLORIDE [Suspect]
     Active Substance: GEMCITABINE HYDROCHLORIDE
     Indication: Choriocarcinoma
     Route: 065
  44. GEMCITABINE [Suspect]
     Active Substance: GEMCITABINE
     Indication: Choriocarcinoma
     Dosage: UNK
     Route: 065
  45. GEMCITABINE [Suspect]
     Active Substance: GEMCITABINE
     Indication: Recurrent cancer
     Dosage: UNK, CYCLICAL
     Route: 065
  46. METHOTREXATE [Suspect]
     Active Substance: METHOTREXATE
     Indication: Choriocarcinoma
     Dosage: UNK, CYCLICAL
     Route: 065
  47. METHOTREXATE [Suspect]
     Active Substance: METHOTREXATE
     Indication: Choriocarcinoma
     Dosage: UNK
     Route: 065
  48. METHOTREXATE [Suspect]
     Active Substance: METHOTREXATE
     Dosage: UNK, CYCLICAL
     Route: 065
  49. PACLITAXEL [Suspect]
     Active Substance: PACLITAXEL
     Indication: Choriocarcinoma
     Dosage: UNK
     Route: 065
  50. PACLITAXEL [Suspect]
     Active Substance: PACLITAXEL
     Dosage: UNK, CYCLICAL
     Route: 042
  51. PACLITAXEL [Suspect]
     Active Substance: PACLITAXEL
     Dosage: UNK, CYCLIC
     Route: 041
  52. PACLITAXEL [Suspect]
     Active Substance: PACLITAXEL
     Dosage: UNK
     Route: 042
  53. PACLITAXEL [Suspect]
     Active Substance: PACLITAXEL
     Dosage: UNK
     Route: 041
  54. DOXORUBICIN HYDROCHLORIDE [Suspect]
     Active Substance: DOXORUBICIN HYDROCHLORIDE
     Indication: Choriocarcinoma
     Dosage: 35.0 MG/M2, CYCLICAL
     Route: 065
  55. DOXORUBICIN HYDROCHLORIDE [Suspect]
     Active Substance: DOXORUBICIN HYDROCHLORIDE
     Dosage: 35.0 MG/M2
     Route: 065
  56. CYCLOPHOSPHAMIDE [Suspect]
     Active Substance: CYCLOPHOSPHAMIDE
     Indication: Metastatic choriocarcinoma
     Dosage: UNK, CYCLICAL
     Route: 065
  57. CYCLOPHOSPHAMIDE [Suspect]
     Active Substance: CYCLOPHOSPHAMIDE
     Indication: Choriocarcinoma
     Dosage: UNK
     Route: 065
  58. CYCLOPHOSPHAMIDE [Suspect]
     Active Substance: CYCLOPHOSPHAMIDE
     Dosage: UNK, CYCLICAL
     Route: 042
  59. CYCLOPHOSPHAMIDE [Suspect]
     Active Substance: CYCLOPHOSPHAMIDE
     Dosage: 2000.0 UNK, CYCLICAL
     Route: 042
  60. TAXOL [Suspect]
     Active Substance: PACLITAXEL
     Indication: Choriocarcinoma
     Dosage: UNK, CYCLICAL
     Route: 065
  61. TAXOL [Suspect]
     Active Substance: PACLITAXEL
     Dosage: UNK
     Route: 065
  62. VINCRISTINE SULFATE [Suspect]
     Active Substance: VINCRISTINE SULFATE
     Indication: Metastatic choriocarcinoma
     Dosage: UNK, CYCLICAL
     Route: 065
  63. VINCRISTINE SULFATE [Suspect]
     Active Substance: VINCRISTINE SULFATE
     Indication: Choriocarcinoma
     Dosage: UNK
     Route: 065
  64. TAXOTERE [Suspect]
     Active Substance: DOCETAXEL
     Indication: Invasive ductal breast carcinoma
     Route: 042
  65. TAXOTERE [Concomitant]
     Active Substance: DOCETAXEL
     Indication: Invasive ductal breast carcinoma
     Dosage: UNK, CYCLICAL
     Route: 065
  66. TAXOTERE [Concomitant]
     Active Substance: DOCETAXEL
     Dosage: UNK
  67. DOXORUBICIN HYDROCHLORIDE [Concomitant]
     Active Substance: DOXORUBICIN HYDROCHLORIDE
  68. DOXORUBICIN [Concomitant]
     Active Substance: DOXORUBICIN
     Indication: Invasive ductal breast carcinoma
     Dosage: 35.0 MG/M2

REACTIONS (4)
  - Acute myeloid leukaemia [Fatal]
  - Second primary malignancy [Fatal]
  - Product use in unapproved indication [Fatal]
  - Off label use [Fatal]
